FAERS Safety Report 7906660-2 (Version None)
Quarter: 2011Q4

REPORT INFORMATION
  Report Type: 
  Country: None (occurrence: None)
  Receive Date: 20111109
  Receipt Date: 20111109
  Transmission Date: 20120403
  Serious: No
  Sender: FDA-Public Use
  Company Number: None

PATIENT
  Age: 41 Year
  Sex: Female
  Weight: 156.491 kg

DRUGS (1)
  1. AMLODIPINE BESYLATE [Suspect]
     Indication: HYPERTENSION
     Dosage: 10 MG ONCE DAILY ORAL
     Route: 048
     Dates: start: 20110501, end: 20111001

REACTIONS (2)
  - OEDEMA PERIPHERAL [None]
  - ERYTHEMA [None]
